FAERS Safety Report 17427806 (Version 2)
Quarter: 2020Q1

REPORT INFORMATION
  Report Type: Spontaneous
  Country: IT (occurrence: IT)
  Receive Date: 20200218
  Receipt Date: 20200221
  Transmission Date: 20200409
  Serious: Yes (Other)
  Sender: FDA-Public Use
  Company Number: NVSC2019IT037729

PATIENT
  Age: 46 Year
  Sex: Female

DRUGS (9)
  1. THYROXINE [Concomitant]
     Active Substance: LEVOTHYROXINE
     Indication: HORMONE REPLACEMENT THERAPY
     Dosage: UNK
     Route: 065
  2. DASATINIB. [Suspect]
     Active Substance: DASATINIB
     Indication: ACUTE LYMPHOCYTIC LEUKAEMIA
     Dosage: UNK
     Route: 065
  3. PONATINIB [Interacting]
     Active Substance: PONATINIB
     Dosage: 15 MG, QD
     Route: 065
     Dates: start: 201612
  4. PONATINIB [Interacting]
     Active Substance: PONATINIB
     Dosage: 45 MG, QD (DOSE REDUCED AFTER ATRIAL FIBRILATION)
     Route: 065
     Dates: start: 201612
  5. ICLUSIG [Interacting]
     Active Substance: PONATINIB
     Indication: ACUTE LYMPHOCYTIC LEUKAEMIA
     Dosage: 15 MG, QD
     Route: 065
  6. PREDNISONE. [Suspect]
     Active Substance: PREDNISONE
     Indication: ACUTE LYMPHOCYTIC LEUKAEMIA
     Dosage: UNK
     Route: 065
  7. PONATINIB [Interacting]
     Active Substance: PONATINIB
     Dosage: 30 MG, QD
     Route: 065
  8. VORICONAZOLE. [Interacting]
     Active Substance: VORICONAZOLE
     Indication: BRONCHOPULMONARY ASPERGILLOSIS
     Dosage: 100 MG
     Route: 065
     Dates: start: 201612
  9. PONATINIB [Interacting]
     Active Substance: PONATINIB
     Indication: ACUTE LYMPHOCYTIC LEUKAEMIA
     Dosage: 60 MG, QD
     Route: 065

REACTIONS (8)
  - Remission not achieved [Unknown]
  - Neuropathy peripheral [Unknown]
  - Psychotic disorder [Unknown]
  - Hallucination [Unknown]
  - Insomnia [Unknown]
  - Atrial fibrillation [Recovered/Resolved]
  - Drug level increased [Unknown]
  - Drug interaction [Unknown]

NARRATIVE: CASE EVENT DATE: 201712
